FAERS Safety Report 8436958-3 (Version None)
Quarter: 2012Q2

REPORT INFORMATION
  Report Type: 
  Country: None (occurrence: None)
  Receive Date: 20120614
  Receipt Date: 20120608
  Transmission Date: 20120825
  Serious: Yes (Other)
  Sender: FDA-Public Use
  Company Number: US-PFIZER INC-2012118493

PATIENT
  Sex: Male

DRUGS (4)
  1. LABETALOL HCL [Suspect]
     Dosage: 200 MG, UNK
  2. LIPITOR [Suspect]
     Dosage: 10 MG, UNK
  3. AMLODIPINE BESYLATE [Suspect]
     Dosage: 2.5 MG, UNK
  4. AMIODARONE HCL [Suspect]
     Dosage: 200 MG, UNK

REACTIONS (2)
  - HAEMORRHAGE [None]
  - RASH MACULAR [None]
